FAERS Safety Report 4296238-7 (Version None)
Quarter: 2004Q1

REPORT INFORMATION
  Report Type: 
  Country: None (occurrence: None)
  Receive Date: 20040217
  Receipt Date: 20030924
  Transmission Date: 20041129
  Serious: No
  Sender: FDA-Public Use
  Company Number: US-GLAXOSMITHKLINE-A0427405A

PATIENT
  Age: 48 Year
  Sex: Male
  Weight: 102.7 kg

DRUGS (6)
  1. LAMICTAL [Suspect]
     Indication: BIPOLAR DISORDER
     Dosage: 100MG PER DAY
     Route: 048
     Dates: start: 20030822
  2. WELLBUTRIN [Concomitant]
     Dosage: 200MG TWICE PER DAY
     Route: 048
  3. ESKALITH [Concomitant]
     Dosage: 450MG TWICE PER DAY
     Route: 048
  4. NEXIUM [Concomitant]
  5. ZANTAC [Concomitant]
  6. UNSPECIFIED MEDICATION [Concomitant]

REACTIONS (1)
  - WEIGHT INCREASED [None]
